FAERS Safety Report 16470725 (Version 7)
Quarter: 2022Q1

REPORT INFORMATION
  Report Type: Spontaneous
  Country: US (occurrence: US)
  Receive Date: 20190624
  Receipt Date: 20220222
  Transmission Date: 20220423
  Serious: Yes (Hospitalization, Other)
  Sender: FDA-Public Use
  Company Number: US-CATALYST PHARMACEUTICALS, INC-2019CAT00158

PATIENT
  Sex: Female
  Weight: 51.247 kg

DRUGS (19)
  1. FIRDAPSE [Suspect]
     Active Substance: AMIFAMPRIDINE PHOSPHATE
     Indication: Myasthenic syndrome
     Dosage: 5 MG, 3X/DAY
     Route: 048
     Dates: start: 201903, end: 2019
  2. FIRDAPSE [Suspect]
     Active Substance: AMIFAMPRIDINE PHOSPHATE
     Dosage: 10 MG, 3X/DAY (8:00 AM, NOON, 4:00 PM)
     Route: 048
     Dates: start: 2019, end: 201907
  3. FIRDAPSE [Suspect]
     Active Substance: AMIFAMPRIDINE PHOSPHATE
     Dosage: 15 MG, 3X/DAY
     Route: 048
     Dates: start: 201907
  4. FIRDAPSE [Suspect]
     Active Substance: AMIFAMPRIDINE PHOSPHATE
     Dosage: 15 MG, 3X/DAY
     Route: 048
  5. FIRDAPSE [Suspect]
     Active Substance: AMIFAMPRIDINE PHOSPHATE
     Dosage: 1 TABLET (10 MG), 3X/DAY
     Route: 048
  6. FLUOROURACIL [Suspect]
     Active Substance: FLUOROURACIL
     Dosage: UNK
     Dates: start: 2021, end: 20211119
  7. MITOMYCIN C [Suspect]
     Active Substance: MITOMYCIN
     Dosage: UNK
     Dates: start: 2021, end: 20211119
  8. RADIATION THERAPY [Suspect]
     Active Substance: RADIATION THERAPY
     Dosage: 56 GY
     Dates: start: 20211018, end: 20211222
  9. LEVOTHYROXINE [Concomitant]
     Active Substance: LEVOTHYROXINE
     Dosage: 88 ?G, 1X/DAY
  10. PREDNISONE [Concomitant]
     Active Substance: PREDNISONE
     Dosage: 5 MG, 1X/DAY
  11. CALCIUM [Concomitant]
     Active Substance: CALCIUM
  12. BIOTIN [Concomitant]
     Active Substance: BIOTIN
  13. VITAMIN B12 [Concomitant]
     Active Substance: CYANOCOBALAMIN
  14. INFLUENZA VIRUS VACCINE [Concomitant]
     Active Substance: INFLUENZA VIRUS VACCINE
     Dosage: UNK
     Dates: start: 20201021, end: 20201021
  15. VITAMIN D3 [Concomitant]
     Active Substance: CHOLECALCIFEROL
  16. XANAX [Concomitant]
     Active Substance: ALPRAZOLAM
     Indication: Anxiety
     Dosage: OCCASSIONALLY
  17. BUPROPION [Concomitant]
     Active Substance: BUPROPION
  18. SARS-COV-2 (COVID-19) [Concomitant]
     Dosage: UNK
     Dates: start: 20210303, end: 20210303
  19. SARS-COV-2 (COVID-19) [Concomitant]
     Dosage: UNK
     Dates: start: 20210210, end: 20210210

REACTIONS (44)
  - Rectal cancer [Recovering/Resolving]
  - Anal squamous cell carcinoma [Recovering/Resolving]
  - Dehydration [Recovering/Resolving]
  - Orthostatic hypotension [Recovering/Resolving]
  - Vomiting [Recovering/Resolving]
  - Neutropenia [Recovered/Resolved]
  - Pancytopenia [Unknown]
  - Thrombocytopenia [Unknown]
  - Intestinal obstruction [Unknown]
  - Renal cell carcinoma [Not Recovered/Not Resolved]
  - Nausea [Recovering/Resolving]
  - Diarrhoea [Recovered/Resolved]
  - Drug ineffective [Not Recovered/Not Resolved]
  - Temperature intolerance [Not Recovered/Not Resolved]
  - Weight increased [Not Recovered/Not Resolved]
  - Weight decreased [Unknown]
  - Lethargy [Recovering/Resolving]
  - Pruritus [Not Recovered/Not Resolved]
  - Decreased appetite [Not Recovered/Not Resolved]
  - Hypoaesthesia [Not Recovered/Not Resolved]
  - Speech disorder [Not Recovered/Not Resolved]
  - Papilloma viral infection [Not Recovered/Not Resolved]
  - Gait disturbance [Not Recovered/Not Resolved]
  - Haemorrhoids [Unknown]
  - Malnutrition [Unknown]
  - Haemoglobin decreased [Unknown]
  - Urine leukocyte esterase positive [Unknown]
  - Sterile pyuria [Unknown]
  - Malaise [Recovering/Resolving]
  - Pleural effusion [Unknown]
  - Anaemia [Unknown]
  - Cough [Unknown]
  - Hypophagia [Unknown]
  - Pyuria [Unknown]
  - Sinus congestion [Unknown]
  - Upper-airway cough syndrome [Unknown]
  - Increased tendency to bruise [Not Recovered/Not Resolved]
  - Ecchymosis [Not Recovered/Not Resolved]
  - Hypoaesthesia oral [Not Recovered/Not Resolved]
  - Insomnia [Not Recovered/Not Resolved]
  - Paraesthesia [Not Recovered/Not Resolved]
  - Paraesthesia oral [Not Recovered/Not Resolved]
  - Asthenia [Not Recovered/Not Resolved]
  - Dizziness [Unknown]

NARRATIVE: CASE EVENT DATE: 20190101
